FAERS Safety Report 21309238 (Version 1)
Quarter: 2022Q3

REPORT INFORMATION
  Report Type: Spontaneous
  Country: TR (occurrence: TR)
  Receive Date: 20220908
  Receipt Date: 20220908
  Transmission Date: 20221026
  Serious: Yes (Other)
  Sender: FDA-Public Use
  Company Number: TR-PADAGIS-2022PAD00547

PATIENT

DRUGS (1)
  1. IMIQUIMOD [Suspect]
     Active Substance: IMIQUIMOD
     Indication: Leukoplakia oral
     Dosage: 20 MINIMUM EVERY OTHER DAY
     Route: 065

REACTIONS (1)
  - Drug ineffective for unapproved indication [Unknown]
